FAERS Safety Report 17876048 (Version 1)
Quarter: 2020Q2

REPORT INFORMATION
  Report Type: Report from Study
  Country: None (occurrence: ES)
  Receive Date: 20200609
  Receipt Date: 20200609
  Transmission Date: 20200714
  Serious: Yes (Hospitalization)
  Sender: FDA-Public Use
  Company Number: ES-ABBVIE-20K-144-3436484-00

PATIENT
  Age: 72 Year
  Sex: Female
  Weight: 62 kg

DRUGS (1)
  1. DUODOPA [Suspect]
     Active Substance: CARBIDOPA\LEVODOPA
     Indication: PARKINSON^S DISEASE
     Route: 050
     Dates: start: 20190606

REACTIONS (3)
  - Fall [Recovering/Resolving]
  - Craniocerebral injury [Unknown]
  - Contusion [Unknown]

NARRATIVE: CASE EVENT DATE: 202005
